FAERS Safety Report 13765499 (Version 2)
Quarter: 2017Q3

REPORT INFORMATION
  Report Type: Spontaneous
  Country: US (occurrence: US)
  Receive Date: 20170718
  Receipt Date: 20170719
  Transmission Date: 20171127
  Serious: Yes (Other)
  Sender: FDA-Public Use
  Company Number: US-PFIZER INC-2017307478

PATIENT
  Age: 76 Year
  Sex: Female
  Weight: 66.21 kg

DRUGS (2)
  1. LYRICA [Suspect]
     Active Substance: PREGABALIN
     Indication: FIBROMYALGIA
     Dosage: 150 MG, ONE IN THE MORNING AND TWO AT NIGHT BEFORE BED TIME
     Route: 048
  2. LYRICA [Suspect]
     Active Substance: PREGABALIN
     Indication: RHEUMATOID ARTHRITIS

REACTIONS (7)
  - Impaired work ability [Unknown]
  - Dysstasia [Unknown]
  - Spinal fracture [Unknown]
  - Fall [Unknown]
  - Dry throat [Unknown]
  - Gait disturbance [Not Recovered/Not Resolved]
  - Fall [Unknown]

NARRATIVE: CASE EVENT DATE: 201610
